FAERS Safety Report 4768609-3 (Version None)
Quarter: 2005Q3

REPORT INFORMATION
  Report Type: 
  Country: None (occurrence: None)
  Receive Date: 20050914
  Receipt Date: 20050907
  Transmission Date: 20060218
  Serious: Yes (Hospitalization)
  Sender: FDA-Public Use
  Company Number: 2005UW13237

PATIENT
  Age: 66 Year
  Sex: Male

DRUGS (6)
  1. ATENOLOL [Suspect]
     Route: 048
     Dates: end: 20050627
  2. MICARDIS (BLIND DRUG) [Suspect]
     Route: 048
     Dates: start: 20041206, end: 20050626
  3. COZAAR (BLINDED DRUG) [Suspect]
     Route: 048
     Dates: start: 20041206, end: 20050626
  4. LASIX [Suspect]
     Route: 048
     Dates: end: 20050627
  5. VERAPAMIL [Suspect]
     Route: 048
     Dates: end: 20050627
  6. POTASSIUM CHLORIDE [Concomitant]

REACTIONS (14)
  - ANAEMIA [None]
  - BRADYCARDIA [None]
  - DIABETIC FOOT [None]
  - DIABETIC KETOACIDOSIS [None]
  - LIMB INJURY [None]
  - LOCALISED INFECTION [None]
  - NECROSIS [None]
  - OEDEMA PERIPHERAL [None]
  - OSTEOMYELITIS [None]
  - PAIN IN EXTREMITY [None]
  - PERIPHERAL VASCULAR DISORDER [None]
  - RENAL FAILURE [None]
  - RENAL FAILURE ACUTE [None]
  - TOE AMPUTATION [None]
